FAERS Safety Report 17835129 (Version 1)
Quarter: 2020Q2

REPORT INFORMATION
  Report Type: Report from Study
  Country: DE (occurrence: DE)
  Receive Date: 20200528
  Receipt Date: 20200528
  Transmission Date: 20200714
  Serious: Yes (Other)
  Sender: FDA-Public Use
  Company Number: DE-SA-2019SA349109

PATIENT
  Age: 78 Year
  Sex: Male
  Weight: 111 kg

DRUGS (18)
  1. LENALIDOMIDE [Interacting]
     Active Substance: LENALIDOMIDE
     Dosage: 25 MG, QD
     Route: 048
     Dates: start: 20190902, end: 20190902
  2. METOPROLOL. [Concomitant]
     Active Substance: METOPROLOL
     Dosage: 47.5 MG, QD
     Route: 048
  3. DEXAMETHASONE. [Interacting]
     Active Substance: DEXAMETHASONE
     Dosage: 20 MG, QW
     Route: 042
     Dates: start: 20190902, end: 20190902
  4. DEKRISTOL [Concomitant]
     Active Substance: CHOLECALCIFEROL
     Dosage: 1000 IU, QD
     Route: 048
  5. PALEXIA [Concomitant]
     Active Substance: TAPENTADOL HYDROCHLORIDE
     Dosage: 200 MG, QD
     Route: 048
  6. BORTEZOMIB. [Interacting]
     Active Substance: BORTEZOMIB
     Indication: PLASMA CELL MYELOMA
     Dosage: 1.3 MG/M2, OTHER
     Route: 058
     Dates: start: 20191111, end: 20191111
  7. DEXAMETHASONE. [Interacting]
     Active Substance: DEXAMETHASONE
     Indication: PLASMA CELL MYELOMA
     Dosage: 20 MG, BIW
     Route: 042
     Dates: start: 20191111, end: 20191111
  8. EDOXABAN [Concomitant]
     Active Substance: EDOXABAN TOSYLATE
     Dosage: 60 MG, QD
     Route: 048
  9. ISATUXIMAB [Interacting]
     Active Substance: ISATUXIMAB
     Dosage: 10 MG/KG, QW
     Route: 042
     Dates: start: 20190902, end: 20190902
  10. 9-TETRAHYDROCANNABINOL [Concomitant]
     Active Substance: DRONABINOL
     Dosage: UNIT: ML
     Route: 048
     Dates: start: 201910, end: 20191114
  11. LERCANIDIPINE [Concomitant]
     Active Substance: LERCANIDIPINE
     Dosage: 10 MG, QD
     Route: 048
  12. ISATUXIMAB [Suspect]
     Active Substance: ISATUXIMAB
     Indication: PLASMA CELL MYELOMA
     Dosage: 10 MG/KG, QOW
     Route: 042
     Dates: start: 20191111, end: 20191111
  13. IBUPROFEN. [Concomitant]
     Active Substance: IBUPROFEN
     Dosage: 1800 MG, QD
     Route: 048
  14. LENALIDOMIDE [Interacting]
     Active Substance: LENALIDOMIDE
     Indication: PLASMA CELL MYELOMA
     Dosage: 25 MG, QD
     Route: 048
     Dates: start: 20191104, end: 20191111
  15. ESOMEPRAZOL [ESOMEPRAZOLE] [Concomitant]
     Active Substance: ESOMEPRAZOLE
     Dosage: 20 MG, QD
     Route: 048
  16. DENOSUMAB [Concomitant]
     Active Substance: DENOSUMAB
     Dosage: 60 MG, QD
     Route: 048
  17. BORTEZOMIB. [Interacting]
     Active Substance: BORTEZOMIB
     Dosage: 1.3 MG/M2, OTHER
     Route: 058
     Dates: start: 20190902, end: 20190902
  18. RAMIPRIL. [Concomitant]
     Active Substance: RAMIPRIL
     Dosage: 5 MG, QD
     Route: 048

REACTIONS (3)
  - Drug interaction [Recovered/Resolved]
  - C-reactive protein increased [Recovered/Resolved]
  - Transaminases increased [Recovered/Resolved]

NARRATIVE: CASE EVENT DATE: 20191111
